FAERS Safety Report 4839167-X (Version None)
Quarter: 2005Q4

REPORT INFORMATION
  Report Type: 
  Country: None (occurrence: None)
  Receive Date: 20051128
  Receipt Date: 20051128
  Transmission Date: 20060501
  Serious: Yes (Disabling)
  Sender: FDA-Public Use
  Company Number: None

PATIENT
  Age: 32 Year
  Sex: Female

DRUGS (1)
  1. PROLIXIN [Suspect]

REACTIONS (4)
  - AKINESIA [None]
  - HYPERHIDROSIS [None]
  - JOINT STIFFNESS [None]
  - TACHYCARDIA [None]
